FAERS Safety Report 11728709 (Version 2)
Quarter: 2015Q4

REPORT INFORMATION
  Report Type: Report from Study
  Country: CA (occurrence: CA)
  Receive Date: 20151112
  Receipt Date: 20151216
  Transmission Date: 20160304
  Serious: Yes (Other)
  Sender: FDA-Public Use
  Company Number: CA-BAYER-2015-438010

PATIENT
  Age: 47 Year
  Sex: Female

DRUGS (4)
  1. ELAVIL [Concomitant]
     Active Substance: AMITRIPTYLINE HYDROCHLORIDE
  2. MODAFINIL. [Concomitant]
     Active Substance: MODAFINIL
  3. BETASERON [Suspect]
     Active Substance: INTERFERON BETA-1B
     Indication: MULTIPLE SCLEROSIS
     Dosage: 0.25 MG, QOD
     Route: 058
     Dates: start: 20111207
  4. GABAPENTIN. [Concomitant]
     Active Substance: GABAPENTIN

REACTIONS (8)
  - Autoimmune thyroiditis [None]
  - Exophthalmos [Recovered/Resolved]
  - Extraocular muscle paresis [None]
  - Basedow^s disease [None]
  - Papilloedema [Recovered/Resolved]
  - Exophthalmos [None]
  - Eyelid oedema [None]
  - Hypothyroidism [Recovered/Resolved]

NARRATIVE: CASE EVENT DATE: 201311
